FAERS Safety Report 9654427 (Version 2)
Quarter: 2013Q4

REPORT INFORMATION
  Report Type: Spontaneous
  Country: MA (occurrence: MA)
  Receive Date: 20131029
  Receipt Date: 20131029
  Transmission Date: 20140711
  Serious: Yes (Death, Other)
  Sender: FDA-Public Use
  Company Number: PHHY2012MA030482

PATIENT
  Age: 63 Year
  Sex: Female

DRUGS (4)
  1. GLIVEC [Suspect]
     Indication: CHRONIC MYELOID LEUKAEMIA
     Dosage: 400 MG PER DAY
     Route: 048
     Dates: start: 20100308
  2. GLIVEC [Suspect]
     Dosage: 300 MG, PER DAY
     Route: 048
  3. GLIVEC [Suspect]
     Dosage: 400 MG PER DAY
     Route: 048
  4. GLIVEC [Suspect]
     Dosage: 300 MG, UNK
     Route: 048

REACTIONS (5)
  - Death [Fatal]
  - Pancytopenia [Unknown]
  - Anaemia [Unknown]
  - Thrombocytopenia [Unknown]
  - Neutropenia [Unknown]
